FAERS Safety Report 7154790-8 (Version None)
Quarter: 2010Q4

REPORT INFORMATION
  Report Type: 
  Country: None (occurrence: None)
  Receive Date: 20101214
  Receipt Date: 20091109
  Transmission Date: 20110411
  Serious: Yes (Death)
  Sender: FDA-Public Use
  Company Number: US-AMGEN-KDL373617

PATIENT

DRUGS (1)
  1. ENBREL [Suspect]
     Indication: ERYTHRODERMIC PSORIASIS
     Dosage: UNK UNK, UNK
     Dates: start: 20050901

REACTIONS (1)
  - DEATH [None]
